FAERS Safety Report 22286085 (Version 2)
Quarter: 2023Q2

REPORT INFORMATION
  Report Type: Spontaneous
  Country: US (occurrence: US)
  Receive Date: 20230505
  Receipt Date: 20230607
  Transmission Date: 20230721
  Serious: No
  Sender: FDA-Public Use
  Company Number: US-SLATE RUN PHARMACEUTICALS-23US001570

PATIENT

DRUGS (5)
  1. DESVENLAFAXINE SUCCINATE [Suspect]
     Active Substance: DESVENLAFAXINE SUCCINATE
     Indication: Depression
     Dosage: 100 MILLIGRAM
     Route: 048
     Dates: start: 202303
  2. DESVENLAFAXINE SUCCINATE [Suspect]
     Active Substance: DESVENLAFAXINE SUCCINATE
     Dosage: 50 MILLIGRAM
     Route: 048
     Dates: start: 202304
  3. DESVENLAFAXINE [Concomitant]
     Active Substance: DESVENLAFAXINE
     Indication: Depression
  4. BUPROPION HYDROCHLORIDE XL [Concomitant]
     Active Substance: BUPROPION HYDROCHLORIDE
     Indication: Depression
     Dosage: 20 MILLIGRAM
     Dates: start: 2003
  5. THYROXINE [Concomitant]
     Active Substance: LEVOTHYROXINE
     Indication: Hypothyroidism
     Dosage: UNK, QD
     Route: 048
     Dates: start: 2008

REACTIONS (10)
  - Drug ineffective [Unknown]
  - Nervousness [Unknown]
  - Depression [Unknown]
  - Product residue present [Unknown]
  - Dizziness [Unknown]
  - Agitation [Unknown]
  - Sleep disorder [Unknown]
  - Vision blurred [Unknown]
  - Anxiety [Unknown]
  - Memory impairment [Unknown]

NARRATIVE: CASE EVENT DATE: 20230101
